FAERS Safety Report 5931487-0 (Version None)
Quarter: 2008Q4

REPORT INFORMATION
  Report Type: 
  Country: None (occurrence: None)
  Receive Date: 20081009
  Receipt Date: 20080522
  Transmission Date: 20090506
  Serious: Yes (Hospitalization, Other)
  Sender: FDA-Public Use
  Company Number: PHEH2008US04015

PATIENT
  Age: 66 Year
  Sex: Male

DRUGS (14)
  1. ZOMETA [Suspect]
     Dosage: 4 MG, MONTHLY, INTRAVENOUS
     Route: 042
     Dates: start: 20070501, end: 20080402
  2. COREG [Concomitant]
  3. LISINOPRIL [Concomitant]
  4. TRICOR [Concomitant]
  5. ASPIRIN [Concomitant]
  6. MULTIVITAMINS (ASCORBIC ACID, ERGOCALCIFEROL, FOLIC ACID, NICOTINAMIDE [Concomitant]
  7. PREVACID [Concomitant]
  8. LASIX [Concomitant]
  9. KLOR-CON [Concomitant]
  10. LIPITOR /NET/ (ATORVASTATIN CALCIUM) [Concomitant]
  11. VITAMIN B12 [Concomitant]
  12. DECADRON /CAN/ (DEXAMETHASONE) [Concomitant]
  13. PREDNISONE [Concomitant]
  14. DOCETAXEL [Concomitant]

REACTIONS (8)
  - DENTAL CARIES [None]
  - MASTICATION DISORDER [None]
  - OSTEONECROSIS [None]
  - PAIN IN JAW [None]
  - PYREXIA [None]
  - SUPERINFECTION [None]
  - SWELLING [None]
  - X-RAY ABNORMAL [None]
